FAERS Safety Report 6653846-3 (Version None)
Quarter: 2010Q1

REPORT INFORMATION
  Report Type: 
  Country: None (occurrence: None)
  Receive Date: 20100326
  Receipt Date: 20100319
  Transmission Date: 20100710
  Serious: Yes (Other)
  Sender: FDA-Public Use
  Company Number: B0642401A

PATIENT
  Sex: Female

DRUGS (4)
  1. ZANTAC [Suspect]
     Indication: DRUG USE FOR UNKNOWN INDICATION
     Route: 065
  2. UNKNOWN DRUG [Suspect]
     Indication: DRUG USE FOR UNKNOWN INDICATION
     Route: 065
  3. RESTAMIN [Suspect]
     Indication: DRUG USE FOR UNKNOWN INDICATION
     Route: 048
  4. PACLITAXEL [Concomitant]
     Route: 042

REACTIONS (4)
  - ANAPHYLACTOID REACTION [None]
  - DYSPNOEA [None]
  - FLUSHING [None]
  - PYREXIA [None]
